FAERS Safety Report 24748624 (Version 1)
Quarter: 2024Q4

REPORT INFORMATION
  Report Type: Spontaneous
  Country: DE (occurrence: DE)
  Receive Date: 20241218
  Receipt Date: 20241218
  Transmission Date: 20250115
  Serious: Yes (Disabling)
  Sender: NORDIC PHARMA
  Company Number: DE-NORDICGR-058191

PATIENT
  Sex: Female
  Weight: 51 kg

DRUGS (7)
  1. METHOTREXATE [Suspect]
     Active Substance: METHOTREXATE
     Indication: Rheumatic disorder
     Dosage: SHE RECEIVED 10 INJECTIONS
     Route: 065
  2. METHOTREXATE [Suspect]
     Active Substance: METHOTREXATE
     Indication: Rheumatic disorder
     Route: 065
     Dates: start: 20241126, end: 20241126
  3. LThyroxine [Concomitant]
     Indication: Hypothyroidism
     Route: 065
     Dates: start: 202410, end: 202411
  4. LThyroxine [Concomitant]
     Indication: Hypothyroidism
     Route: 065
     Dates: start: 202411
  5. Dekristol 20T I.U. [Concomitant]
     Indication: Osteoporosis
     Route: 065
  6. Fructaid [Concomitant]
     Indication: Fructose intolerance
     Route: 065
  7. LACTASE [Concomitant]
     Active Substance: LACTASE
     Indication: Lactose intolerance
     Route: 048

REACTIONS (6)
  - Migraine [Unknown]
  - Osteoporosis [Unknown]
  - Vomiting [Unknown]
  - Visual impairment [Unknown]
  - Head discomfort [Unknown]
  - Blood pressure increased [Unknown]

NARRATIVE: CASE EVENT DATE: 20240101
